FAERS Safety Report 6741411-9 (Version None)
Quarter: 2010Q2

REPORT INFORMATION
  Report Type: 
  Country: None (occurrence: None)
  Receive Date: 20100526
  Receipt Date: 20100519
  Transmission Date: 20101027
  Serious: Yes (Hospitalization)
  Sender: FDA-Public Use
  Company Number: JP-B.I. PHARMACEUTICALS,INC./RIDGEFIELD-2010-BP-05745NB

PATIENT
  Age: 66 Year
  Sex: Female

DRUGS (10)
  1. MICARDIS [Suspect]
     Indication: HYPERTENSION
     Dosage: 20 MG
     Route: 048
  2. TARGOCID [Suspect]
     Indication: INFECTION PROPHYLAXIS
     Dosage: 800 MG
     Route: 042
     Dates: start: 20100416, end: 20100417
  3. TARGOCID [Suspect]
     Dosage: 400 MG
     Route: 042
     Dates: start: 20100417, end: 20100423
  4. TARGOCID [Suspect]
     Dosage: 600 MG
     Route: 042
     Dates: start: 20100423, end: 20100424
  5. TARGOCID [Suspect]
     Dosage: 400 MG
     Route: 042
     Dates: start: 20100424, end: 20100427
  6. LAMISIL [Concomitant]
     Dosage: 125 MG
     Route: 048
  7. PARIET [Concomitant]
     Dosage: 20 MG
     Route: 048
  8. ADALAT CC [Concomitant]
     Dosage: 20 MG
     Route: 048
  9. WARKMIN [Concomitant]
     Dosage: 1 MCG
     Route: 048
  10. ASPARA-CA [Concomitant]
     Dosage: 600 MG
     Route: 048

REACTIONS (2)
  - OSTEOARTHRITIS [None]
  - PYREXIA [None]
